FAERS Safety Report 24310634 (Version 3)
Quarter: 2024Q4

REPORT INFORMATION
  Report Type: Spontaneous
  Country: JP (occurrence: JP)
  Receive Date: 20240912
  Receipt Date: 20241003
  Transmission Date: 20250115
  Serious: Yes (Other)
  Sender: GLAXOSMITHKLINE
  Company Number: JP-GSKNCCC-Case-02061649_AE-87519

PATIENT

DRUGS (1)
  1. FLUTICASONE PROPIONATE [Suspect]
     Active Substance: FLUTICASONE PROPIONATE
     Indication: Asthma
     Dosage: 100 ?G, 1 INHALATION PER DAY

REACTIONS (3)
  - Pharyngeal cancer [Unknown]
  - Inappropriate schedule of product administration [Unknown]
  - Off label use [Unknown]
